FAERS Safety Report 11577792 (Version 2)
Quarter: 2015Q4

REPORT INFORMATION
  Report Type: Spontaneous
  Country: US (occurrence: US)
  Receive Date: 20150930
  Receipt Date: 20151209
  Transmission Date: 20160304
  Serious: No
  Sender: FDA-Public Use
  Company Number: ALCN2015US006101

PATIENT
  Age: 71 Year
  Sex: Female

DRUGS (1)
  1. GENTEAL GEL [Suspect]
     Active Substance: CARBOXYMETHYLCELLULOSE SODIUM\HYPROMELLOSES
     Indication: DRY EYE
     Dosage: 1 GTT, QHS
     Route: 047
     Dates: start: 20150921, end: 20150922

REACTIONS (3)
  - Ocular hyperaemia [Recovered/Resolved]
  - Eyelid margin crusting [Recovered/Resolved]
  - Eye pain [Recovered/Resolved]

NARRATIVE: CASE EVENT DATE: 20150921
